FAERS Safety Report 14715234 (Version 2)
Quarter: 2018Q2

REPORT INFORMATION
  Report Type: Spontaneous
  Country: US (occurrence: US)
  Receive Date: 20180404
  Receipt Date: 20180424
  Transmission Date: 20180711
  Serious: Yes (Other)
  Sender: FDA-Public Use
  Company Number: US-COOPERSURGICAL, INC.-US-2018CPS000224

PATIENT

DRUGS (4)
  1. PREVACID [Concomitant]
     Active Substance: LANSOPRAZOLE
     Indication: GASTRIC ULCER
     Dosage: UNK
     Dates: start: 2015, end: 20161107
  2. SYNTHROID [Concomitant]
     Active Substance: LEVOTHYROXINE SODIUM
     Indication: HYPOTHYROIDISM
     Dosage: 112 ?G, ONE TABLET EVERY DAY
     Route: 048
  3. PARAGARD T 380A [Suspect]
     Active Substance: COPPER
     Indication: CONTRACEPTION
     Dosage: UNK
     Route: 015
     Dates: start: 20130711, end: 20180205
  4. PARAGARD T 380A [Suspect]
     Active Substance: COPPER
     Dosage: UNK
     Route: 015
     Dates: start: 20180319

REACTIONS (10)
  - Gastric ulcer [Unknown]
  - Device dislocation [Not Recovered/Not Resolved]
  - Dyspareunia [Unknown]
  - Pelvic pain [Unknown]
  - Complication of device removal [Not Recovered/Not Resolved]
  - Hypothyroidism [Unknown]
  - Discomfort [Unknown]
  - Insomnia [Unknown]
  - Uterine dilation and curettage [Unknown]
  - Metrorrhagia [Unknown]

NARRATIVE: CASE EVENT DATE: 2015
